FAERS Safety Report 9735872 (Version 1)
Quarter: 2013Q4

REPORT INFORMATION
  Report Type: Spontaneous
  Country: US (occurrence: US)
  Receive Date: 20131206
  Receipt Date: 20131206
  Transmission Date: 20140711
  Serious: No
  Sender: FDA-Public Use
  Company Number: US-GILEAD-2009-0024251

PATIENT
  Sex: Female

DRUGS (20)
  1. LETAIRIS [Suspect]
     Indication: PULMONARY ARTERIAL HYPERTENSION
     Route: 048
     Dates: start: 20080527
  2. ADVAIR [Concomitant]
  3. CARTIA XT [Concomitant]
  4. NEURONTIN [Concomitant]
  5. BENZONATATE [Concomitant]
  6. METFORMIN [Concomitant]
  7. CLARITIN [Concomitant]
  8. LUNESTA [Concomitant]
  9. ULTRAM [Concomitant]
  10. LEXAPRO [Concomitant]
  11. SYNTHROID [Concomitant]
  12. FUROSEMIDE [Concomitant]
  13. ASPIRIN [Concomitant]
  14. IMDUR [Concomitant]
  15. COZAAR [Concomitant]
  16. CALCIUM/VITAMIN D [Concomitant]
  17. GLUCOSAMINE [Concomitant]
  18. MELATONIN [Concomitant]
  19. POTASSIUM [Concomitant]
  20. MULTI-VITAMIN [Concomitant]

REACTIONS (1)
  - Anaemia [Not Recovered/Not Resolved]
